FAERS Safety Report 8435477-8 (Version None)
Quarter: 2012Q2

REPORT INFORMATION
  Report Type: 
  Country: None (occurrence: None)
  Receive Date: 20120614
  Receipt Date: 20120611
  Transmission Date: 20120825
  Serious: Yes (Life-Threatening)
  Sender: FDA-Public Use
  Company Number: SI-BAYER-2012-057719

PATIENT
  Age: 30 Year
  Sex: Female

DRUGS (1)
  1. MIRENA [Suspect]
     Indication: CONTRACEPTION
     Dosage: DAILY DOSE 20 MCG/24HR
     Route: 015
     Dates: start: 20110501, end: 20120501

REACTIONS (5)
  - MENSTRUATION IRREGULAR [None]
  - ECTOPIC PREGNANCY [None]
  - PERITONEAL HAEMORRHAGE [None]
  - VAGINAL HAEMORRHAGE [None]
  - PAIN [None]
